FAERS Safety Report 4839947-0 (Version None)
Quarter: 2005Q4

REPORT INFORMATION
  Report Type: 
  Country: None (occurrence: None)
  Receive Date: 20051129
  Receipt Date: 20051114
  Transmission Date: 20060501
  Serious: Yes (Hospitalization)
  Sender: FDA-Public Use
  Company Number: BR-BRISTOL-MYERS SQUIBB COMPANY-13190111

PATIENT
  Age: 46 Year
  Sex: Male

DRUGS (3)
  1. STOCRIN TABS [Suspect]
     Indication: HIV INFECTION
  2. LAMIVUDINE [Suspect]
     Indication: HIV INFECTION
  3. ZIDOVUDINE [Suspect]
     Indication: HIV INFECTION

REACTIONS (2)
  - CUTANEOUS LEISHMANIASIS [None]
  - IMMUNE RECONSTITUTION SYNDROME [None]
